FAERS Safety Report 9404042 (Version 1)
Quarter: 2013Q3

REPORT INFORMATION
  Report Type: Report from Study
  Country: CA (occurrence: CA)
  Receive Date: 20130717
  Receipt Date: 20130717
  Transmission Date: 20140515
  Serious: Yes (Hospitalization)
  Sender: FDA-Public Use
  Company Number: CA-JNJFOC-20130412607

PATIENT
  Age: 24 Year
  Sex: Female
  Weight: 95 kg

DRUGS (12)
  1. REMICADE [Suspect]
     Indication: CROHN^S DISEASE
     Route: 042
     Dates: start: 20130416
  2. REMICADE [Suspect]
     Indication: CROHN^S DISEASE
     Route: 042
     Dates: start: 20100225
  3. MAXALT [Concomitant]
     Route: 065
  4. PROBIOTIC [Concomitant]
     Dosage: (VSL3)ONE PACKET ONCE DAILY
     Route: 065
  5. CIPRO [Concomitant]
     Route: 048
  6. CELEBREX [Concomitant]
     Dosage: ONE PACKET DAILY
     Route: 065
  7. ELAVIL [Concomitant]
     Route: 065
  8. SINGULAIR [Concomitant]
     Route: 065
  9. VITAMIN C [Concomitant]
     Route: 065
  10. CALCIUM [Concomitant]
     Route: 065
  11. NEXIUM [Concomitant]
     Route: 065
  12. FLAGYL [Concomitant]
     Route: 048

REACTIONS (7)
  - Incision site haemorrhage [Recovered/Resolved]
  - Pain [Recovered/Resolved]
  - Pyrexia [Recovered/Resolved]
  - Malaise [Recovered/Resolved]
  - Infusion related reaction [Recovered/Resolved]
  - Dyspnoea [Recovered/Resolved]
  - Cough [Recovered/Resolved]
